FAERS Safety Report 7117172 (Version 3)
Quarter: 2017Q1

REPORT INFORMATION
  Report Type: Report from Study
  Country: JP (occurrence: JP)
  Receive Date: 20090917
  Receipt Date: 20170213
  Transmission Date: 20170429
  Serious: Yes (Hospitalization, Other)
  Sender: FDA-Public Use
  Company Number: JP-BRISTOL-MYERS SQUIBB COMPANY-14688295

PATIENT
  Age: 64 Year
  Sex: Female
  Weight: 51 kg

DRUGS (14)
  1. VINCRISTINE SULFATE. [Suspect]
     Active Substance: VINCRISTINE SULFATE
     Indication: ACUTE LYMPHOCYTIC LEUKAEMIA
     Dosage: 1.9 MG, QD
     Route: 042
     Dates: start: 20090325, end: 20090325
  2. FUNGIZONE [Concomitant]
     Active Substance: AMPHOTERICIN B
     Indication: INFECTION
     Dosage: FORM SOL
     Route: 048
     Dates: start: 20090404, end: 20090410
  3. VANCOMYCIN HCL [Concomitant]
     Active Substance: VANCOMYCIN HYDROCHLORIDE
     Indication: PRODUCT USED FOR UNKNOWN INDICATION
     Dosage: GRAN;POWDER
     Route: 048
     Dates: start: 20090402, end: 20090408
  4. REBAMIPIDE [Concomitant]
     Active Substance: REBAMIPIDE
     Indication: INFECTION
     Dosage: 300 MG, QD
     Route: 048
     Dates: start: 20090404, end: 20090410
  5. EXTERNAL-CYCLOPHOSPHAMIDE [Suspect]
     Active Substance: CYCLOPHOSPHAMIDE
     Indication: ACUTE LYMPHOCYTIC LEUKAEMIA
     Dosage: 1800 MG, QD
     Route: 042
     Dates: start: 20090325, end: 20090325
  6. CLOSTRIDIUM BUTYRICUM [Concomitant]
     Active Substance: CLOSTRIDIUM BUTYRICUM SPORES STRAIN M-55
     Indication: PRODUCT USED FOR UNKNOWN INDICATION
     Dosage: 120 MG, QD
     Route: 048
     Dates: start: 20090403, end: 20090410
  7. POLYMYXIN B SULFATE. [Concomitant]
     Active Substance: POLYMYXIN B SULFATE
     Indication: INFECTION
     Dosage: 1 DF - 300000 UNITS
     Route: 048
     Dates: start: 20090404, end: 20090410
  8. DAUNORUBICIN HCL [Suspect]
     Active Substance: DAUNORUBICIN HYDROCHLORIDE
     Indication: ACUTE LYMPHOCYTIC LEUKAEMIA
     Dosage: 90 MG, QD
     Route: 042
     Dates: start: 20090325, end: 20090325
  9. SULFAMETHOXAZOLE + TRIMETHOPRIM [Concomitant]
     Active Substance: SULFAMETHOXAZOLE\TRIMETHOPRIM
     Indication: INFECTION
     Dosage: 400 MG, QD
     Route: 048
     Dates: start: 20090404, end: 20090410
  10. METHOTREXATE. [Concomitant]
     Active Substance: METHOTREXATE
     Indication: ACUTE LYMPHOCYTIC LEUKAEMIA
     Dosage: FORM INJ
     Route: 065
     Dates: start: 20090325, end: 20090325
  11. PREDNISOLONE. [Concomitant]
     Active Substance: PREDNISOLONE
     Indication: ACUTE LYMPHOCYTIC LEUKAEMIA
     Dosage: FORM TABS
     Route: 048
     Dates: start: 20090325, end: 20090331
  12. DASATINIB [Suspect]
     Active Substance: DASATINIB
     Indication: ACUTE LYMPHOCYTIC LEUKAEMIA
     Dosage: 26MAR09 TO 14APR09; 28APR09 TO 15MAY09; AND 27MAY09 TO 15JUN09
     Route: 048
     Dates: start: 20090326, end: 20090617
  13. CYTARABINE. [Concomitant]
     Active Substance: CYTARABINE
     Indication: ACUTE LYMPHOCYTIC LEUKAEMIA
     Dosage: FORM INJ
     Route: 065
     Dates: start: 20090325, end: 20090325
  14. FILGRASTIM [Concomitant]
     Active Substance: FILGRASTIM
     Indication: PRODUCT USED FOR UNKNOWN INDICATION
     Dosage: FORM INJ
     Route: 058
     Dates: start: 20090403, end: 20090408

REACTIONS (5)
  - Platelet count decreased [Recovered/Resolved]
  - Anaemia [Not Recovered/Not Resolved]
  - Cytomegalovirus enterocolitis [Recovering/Resolving]
  - White blood cell count decreased [Recovered/Resolved]
  - Neutrophil count decreased [Recovered/Resolved]

NARRATIVE: CASE EVENT DATE: 20090330
